FAERS Safety Report 16766779 (Version 3)
Quarter: 2019Q4

REPORT INFORMATION
  Report Type: Spontaneous
  Country: US (occurrence: US)
  Receive Date: 20190903
  Receipt Date: 20191011
  Transmission Date: 20200122
  Serious: No
  Sender: FDA-Public Use
  Company Number: US-PFIZER INC-2019373178

PATIENT
  Age: 72 Year
  Sex: Male
  Weight: 97.52 kg

DRUGS (4)
  1. ADVIL LIQUI-GELS [Suspect]
     Active Substance: IBUPROFEN
     Dosage: 600 MG, UNK [TAKE 3 EVERY 4 HOURS]
  2. ADVIL LIQUI-GELS [Suspect]
     Active Substance: IBUPROFEN
     Dosage: 800 MG, UNK [4 EVERY 6 TO 8 HOURS]
  3. CORTISONE [Concomitant]
     Active Substance: CORTISONE
     Indication: ARTHRITIS
     Dosage: UNK
     Dates: start: 20190822
  4. ADVIL LIQUI-GELS [Suspect]
     Active Substance: IBUPROFEN
     Indication: PAIN
     Dosage: 200 MG, UNK [1 EVERY 4 HOURS]

REACTIONS (6)
  - Therapeutic product effect decreased [Unknown]
  - Prescribed overdose [Unknown]
  - Root canal infection [Unknown]
  - Swelling [Recovering/Resolving]
  - Intentional product misuse [Unknown]
  - Nerve injury [Unknown]
